FAERS Safety Report 22813035 (Version 4)
Quarter: 2024Q1

REPORT INFORMATION
  Report Type: Spontaneous
  Country: US (occurrence: US)
  Receive Date: 20230811
  Receipt Date: 20240101
  Transmission Date: 20240410
  Serious: No
  Sender: FDA-Public Use
  Company Number: US-SA-SAC20230809000738

PATIENT
  Age: 43 Year
  Sex: Male

DRUGS (2)
  1. DUPIXENT [Suspect]
     Active Substance: DUPILUMAB
     Indication: Eczema
     Dosage: 600 MG, 1X
     Route: 058
     Dates: start: 20230622, end: 20230622
  2. DUPIXENT [Suspect]
     Active Substance: DUPILUMAB
     Indication: Dermatitis atopic
     Dosage: 300 MG, QOW
     Route: 058
     Dates: start: 202307

REACTIONS (15)
  - Ingrown hair [Unknown]
  - Condition aggravated [Unknown]
  - Hordeolum [Unknown]
  - Discharge [Unknown]
  - Hair growth abnormal [Unknown]
  - Condition aggravated [Unknown]
  - Skin ulcer [Unknown]
  - Condition aggravated [Unknown]
  - Skin swelling [Unknown]
  - Pustule [Unknown]
  - Skin exfoliation [Unknown]
  - Condition aggravated [Unknown]
  - Swelling of eyelid [Recovered/Resolved]
  - Eczema [Unknown]
  - Surgery [Unknown]

NARRATIVE: CASE EVENT DATE: 20230101
